FAERS Safety Report 5128843-X (Version None)
Quarter: 2006Q4

REPORT INFORMATION
  Report Type: 
  Country: None (occurrence: None)
  Receive Date: 20061017
  Receipt Date: 20061011
  Transmission Date: 20070319
  Serious: Yes (Hospitalization)
  Sender: FDA-Public Use
  Company Number: FI-GLAXOSMITHKLINE-B0441905A

PATIENT
  Age: 76 Year
  Sex: Female

DRUGS (9)
  1. PANADOL EXTEND CAPLETS [Suspect]
     Dosage: 1330MG THREE TIMES PER DAY
     Route: 048
     Dates: start: 20060821, end: 20060919
  2. ESCITALOPRAM OXALATE [Concomitant]
     Dosage: 5MG PER DAY
  3. METOPROLOL SUCCINATE [Concomitant]
     Dosage: 95MG PER DAY
     Route: 048
  4. DUPHALAC [Concomitant]
     Dosage: 20ML TWICE PER DAY
     Route: 048
  5. ASPIRIN [Concomitant]
     Dosage: 100MG PER DAY
     Route: 048
  6. LYRICA [Concomitant]
     Dosage: 25MG TWICE PER DAY
     Route: 048
     Dates: start: 20061004
  7. KALINORM [Concomitant]
     Dosage: 1UNIT TWICE PER DAY
     Route: 048
  8. OXYCONTIN [Concomitant]
     Dosage: 1UNIT TWICE PER DAY
     Route: 048
     Dates: start: 20061006
  9. CORTISONE ACETATE [Concomitant]

REACTIONS (4)
  - C-REACTIVE PROTEIN INCREASED [None]
  - HEPATIC FAILURE [None]
  - NAUSEA [None]
  - VOMITING [None]
